FAERS Safety Report 4371187-4 (Version None)
Quarter: 2004Q2

REPORT INFORMATION
  Report Type: 
  Country: None (occurrence: None)
  Receive Date: 20040604
  Receipt Date: 20020417
  Transmission Date: 20050107
  Serious: Yes (Other)
  Sender: FDA-Public Use
  Company Number: 3904226

PATIENT
  Age: 42 Year
  Sex: Male
  Weight: 65.1 kg

DRUGS (3)
  1. MALARONE [Suspect]
     Indication: MALARIA PROPHYLAXIS
     Dosage: 1TAB PER DAY
     Route: 048
     Dates: start: 20020126, end: 20020203
  2. MALARONE [Suspect]
     Dosage: 1TAB PER DAY
     Route: 048
     Dates: start: 20020309, end: 20020401
  3. NO CONCURRENT MEDICATION [Concomitant]

REACTIONS (6)
  - DIZZINESS [None]
  - FATIGUE [None]
  - HEADACHE [None]
  - HEART RATE INCREASED [None]
  - PALPITATIONS [None]
  - VERTIGO [None]
